FAERS Safety Report 11390818 (Version 1)
Quarter: 2015Q3

REPORT INFORMATION
  Report Type: Spontaneous
  Country: US (occurrence: None)
  Receive Date: 20150814
  Receipt Date: 20150814
  Transmission Date: 20151125
  Serious: Yes (Life-Threatening, Hospitalization)
  Sender: FDA-Public Use
  Company Number: None

PATIENT
  Age: 80 Year
  Sex: Female
  Weight: 109 kg

DRUGS (15)
  1. DILTIAZEM [Concomitant]
     Active Substance: DILTIAZEM
  2. ONDANSETRON [Concomitant]
     Active Substance: ONDANSETRON
  3. SODIUM BICARBONATE. [Concomitant]
     Active Substance: SODIUM BICARBONATE
  4. FLECAINIDE [Concomitant]
     Active Substance: FLECAINIDE
  5. AMIODARONE [Concomitant]
     Active Substance: AMIODARONE
  6. VITAMIN D3 [Concomitant]
     Active Substance: CHOLECALCIFEROL
  7. MVI [Concomitant]
     Active Substance: VITAMINS
  8. INSULIN [Concomitant]
     Active Substance: INSULIN NOS
  9. SODIUM POLYSTYRENE SULFATE [Concomitant]
  10. APIXABAN [Concomitant]
     Active Substance: APIXABAN
  11. LATANAPROST [Concomitant]
  12. NACL BOLUS [Concomitant]
  13. ESCITALOPRAM [Concomitant]
     Active Substance: ESCITALOPRAM OXALATE
  14. FUROSEMDIE [Concomitant]
  15. AMIODARONE [Suspect]
     Active Substance: AMIODARONE
     Indication: ATRIAL FIBRILLATION
     Dosage: 16.67-33.33 ML/JHR?CONTINUOUS
     Route: 042

REACTIONS (11)
  - Dialysis [None]
  - Thrombocytopenia [None]
  - Cardio-respiratory arrest [None]
  - Renal failure [None]
  - Lactic acidosis [None]
  - Coagulopathy [None]
  - Hypotension [None]
  - Sepsis [None]
  - International normalised ratio increased [None]
  - Multi-organ failure [None]
  - Hepatic failure [None]

NARRATIVE: CASE EVENT DATE: 20150329
